FAERS Safety Report 13230741 (Version 1)
Quarter: 2017Q1

REPORT INFORMATION
  Report Type: Spontaneous
  Country: US (occurrence: US)
  Receive Date: 20170214
  Receipt Date: 20170214
  Transmission Date: 20170428
  Serious: No
  Sender: FDA-Public Use
  Company Number: None

PATIENT
  Age: 59 Year
  Sex: Female
  Weight: 83.99 kg

DRUGS (1)
  1. IMATINIB 100MG [Suspect]
     Active Substance: IMATINIB
     Indication: CHRONIC MYELOID LEUKAEMIA
     Dosage: 4 TABLETS ONCE DAILY BY MOUTH
     Route: 048
     Dates: start: 201604, end: 20160520

REACTIONS (5)
  - Diarrhoea [None]
  - Headache [None]
  - Product substitution issue [None]
  - Tremor [None]
  - Nausea [None]

NARRATIVE: CASE EVENT DATE: 20160520
